FAERS Safety Report 18400515 (Version 1)
Quarter: 2020Q4

REPORT INFORMATION
  Report Type: Spontaneous
  Country: CN (occurrence: CN)
  Receive Date: 20201019
  Receipt Date: 20201019
  Transmission Date: 20210114
  Serious: Yes (Other)
  Sender: FDA-Public Use
  Company Number: CN-PFIZER INC-2020401248

PATIENT
  Age: 75 Year
  Sex: Female
  Weight: 50 kg

DRUGS (2)
  1. AVELOX [Suspect]
     Active Substance: MOXIFLOXACIN HYDROCHLORIDE
     Indication: THERAPEUTIC PROCEDURE
     Dosage: 0.400 G, 1X/DAY
     Route: 041
     Dates: start: 20200717, end: 20200727
  2. TAZOCIN [Suspect]
     Active Substance: PIPERACILLIN SODIUM\TAZOBACTAM SODIUM
     Indication: THERAPEUTIC PROCEDURE
     Dosage: 4.500 G, 3X/DAY
     Route: 041
     Dates: start: 20200717, end: 20200729

REACTIONS (1)
  - Liver injury [Recovering/Resolving]

NARRATIVE: CASE EVENT DATE: 20200721
